FAERS Safety Report 6288025-5 (Version None)
Quarter: 2009Q3

REPORT INFORMATION
  Report Type: 
  Country: None (occurrence: None)
  Receive Date: 20090729
  Receipt Date: 20090716
  Transmission Date: 20100115
  Serious: Yes (Hospitalization)
  Sender: FDA-Public Use
  Company Number: US-ROCHE-644975

PATIENT
  Age: 48 Year
  Sex: Male

DRUGS (14)
  1. CELLCEPT [Suspect]
     Indication: SCLERODERMA
     Route: 048
     Dates: start: 20090401
  2. FOSRENOL [Concomitant]
  3. INSULIN [Concomitant]
  4. CALCITRIOL [Concomitant]
     Dosage: DRUG REPORTED AS CALCITROL
  5. LYRICA [Concomitant]
  6. LORAZEPAM [Concomitant]
  7. COREG [Concomitant]
  8. SOMA [Concomitant]
  9. PEPCID [Concomitant]
  10. GABAPENTIN [Concomitant]
     Dosage: DRUG REPORTED AS GAMAPENTIN
  11. SPIRONOLACTONE [Concomitant]
  12. LASIX [Concomitant]
  13. LISINOPRIL [Concomitant]
  14. CYTOXAN [Concomitant]

REACTIONS (4)
  - FATIGUE [None]
  - FEELING ABNORMAL [None]
  - OESOPHAGEAL STENOSIS [None]
  - TONGUE DISCOLOURATION [None]
